FAERS Safety Report 8554301-6 (Version None)
Quarter: 2012Q3

REPORT INFORMATION
  Report Type: 
  Country: None (occurrence: None)
  Receive Date: 20120731
  Receipt Date: 20120725
  Transmission Date: 20120928
  Serious: Yes (Hospitalization, Disabling, Other)
  Sender: FDA-Public Use
  Company Number: US-009507513-0202USA02118

PATIENT

DRUGS (10)
  1. SYNTHROID [Concomitant]
     Indication: HYPOTHYROIDISM
     Route: 048
     Dates: start: 19960101
  2. ESTRADERM [Concomitant]
  3. PRINZIDE [Concomitant]
  4. LEVOTHROID [Concomitant]
  5. FOSAMAX [Suspect]
     Dosage: 70 MG, QW
     Route: 048
     Dates: start: 20030707, end: 20040413
  6. PREMPRO [Concomitant]
     Indication: MENOPAUSAL SYMPTOMS
     Dates: start: 19970101
  7. CYCRIN [Concomitant]
  8. FOSAMAX [Suspect]
     Indication: OSTEOPOROSIS
     Dosage: 10 MG, QD
     Route: 048
     Dates: start: 19960101, end: 20031001
  9. FOSAMAX [Suspect]
     Route: 048
     Dates: end: 20080101
  10. OGEN [Concomitant]

REACTIONS (30)
  - DECREASED APPETITE [None]
  - OSTEOPOROSIS [None]
  - HYPERTENSION [None]
  - DYSPEPSIA [None]
  - FALL [None]
  - FEMUR FRACTURE [None]
  - CALCIUM DEFICIENCY [None]
  - THROMBOCYTOPENIA [None]
  - HAEMORRHAGIC ANAEMIA [None]
  - BURSITIS [None]
  - ABDOMINAL PAIN UPPER [None]
  - MYALGIA [None]
  - STRESS FRACTURE [None]
  - ALOPECIA [None]
  - HYPOCALCAEMIA [None]
  - NAUSEA [None]
  - ARTHRALGIA [None]
  - OROPHARYNGEAL PAIN [None]
  - DRUG SCREEN POSITIVE [None]
  - PRURITUS [None]
  - DRUG INEFFECTIVE [None]
  - BONE DENSITY DECREASED [None]
  - LOW TURNOVER OSTEOPATHY [None]
  - ORAL DISORDER [None]
  - SPINAL OSTEOARTHRITIS [None]
  - SOMNOLENCE [None]
  - TOOTH DISORDER [None]
  - FACET JOINT SYNDROME [None]
  - VITAMIN D DEFICIENCY [None]
  - CONTUSION [None]
